FAERS Safety Report 8164451-4 (Version None)
Quarter: 2012Q1

REPORT INFORMATION
  Report Type: 
  Country: None (occurrence: None)
  Receive Date: 20120224
  Receipt Date: 20120214
  Transmission Date: 20120608
  Serious: Yes (Disabling)
  Sender: FDA-Public Use
  Company Number: JP-ALLERGAN-1202357US

PATIENT
  Age: 82 Year
  Sex: Male

DRUGS (2)
  1. LUMIGAN [Suspect]
     Indication: OPEN ANGLE GLAUCOMA
     Dosage: 1 GTT, QHS
     Route: 047
     Dates: start: 20100125
  2. AZOPT [Concomitant]
     Dosage: UNK
     Dates: start: 20100915

REACTIONS (1)
  - VISUAL ACUITY REDUCED [None]
